FAERS Safety Report 23876673 (Version 2)
Quarter: 2024Q4

REPORT INFORMATION
  Report Type: Spontaneous
  Country: JP (occurrence: JP)
  Receive Date: 20240521
  Receipt Date: 20241204
  Transmission Date: 20250114
  Serious: Yes (Death, Hospitalization)
  Sender: NOVO NORDISK
  Company Number: JP-NOVOPROD-1220855

PATIENT
  Age: 55 Year
  Sex: Male
  Weight: 35.2 kg

DRUGS (18)
  1. NOVOEIGHT [Suspect]
     Active Substance: ANTIHEMOPHILIC FACTOR, HUMAN RECOMBINANT
     Indication: Factor VIII deficiency
     Dosage: 1000.00 UT
     Route: 042
     Dates: end: 20240424
  2. LANSOPRAZOLE OD CHEMIPHAR [Concomitant]
     Dosage: UNK
  3. RIVOTRIL [Concomitant]
     Active Substance: CLONAZEPAM
     Dosage: UNK
  4. FYCOMPA [Concomitant]
     Active Substance: PERAMPANEL
     Dosage: UNK
  5. REBAMIPIDE [Concomitant]
     Active Substance: REBAMIPIDE
     Dosage: UNK
  6. LEVOCARNITINE HYDROCHLORIDE [Concomitant]
     Active Substance: LEVOCARNITINE HYDROCHLORIDE
     Dosage: UNK
  7. POPIYODON [Concomitant]
     Dosage: UNK
  8. ZOLPIDEM TARTRATE [Concomitant]
     Active Substance: ZOLPIDEM TARTRATE
     Dosage: UNK
  9. DAYVIGO [Concomitant]
     Active Substance: LEMBOREXANT
     Dosage: UNK
  10. FUROSEMIDE [Concomitant]
     Active Substance: FUROSEMIDE
     Dosage: UNK
  11. TOLVAPTAN [Concomitant]
     Active Substance: TOLVAPTAN
     Dosage: UNK
  12. EPINEPHRINE [Concomitant]
     Active Substance: EPINEPHRINE
     Dosage: UNK
  13. EKSALB [Concomitant]
     Dosage: UNK
  14. ZINC OXIDE [Concomitant]
     Active Substance: ZINC OXIDE
     Dosage: UNK
  15. GLUTATHIONE [Concomitant]
     Active Substance: GLUTATHIONE
     Dosage: UNK
  16. DOCARPAMINE [Concomitant]
     Active Substance: DOCARPAMINE
     Dosage: UNK
  17. CELECOXIB [Concomitant]
     Active Substance: CELECOXIB
     Dosage: UNK
  18. BILASTINE [Concomitant]
     Active Substance: BILASTINE
     Dosage: UNK

REACTIONS (2)
  - Septic shock [Fatal]
  - Pneumonia aspiration [Fatal]
